FAERS Safety Report 8103627 (Version 3)
Quarter: 2012Q4

REPORT INFORMATION
  Report Type: Report from Study
  Country: JP (occurrence: JP)
  Receive Date: 20110824
  Receipt Date: 20120831
  Transmission Date: 20130627
  Serious: Yes (Death)
  Sender: FDA-Public Use
  Company Number: PHHY2010JP55560

PATIENT
  Age: 76 Year
  Sex: Female
  Weight: 57 kg

DRUGS (12)
  1. DEFERASIROX [Suspect]
     Indication: IRON OVERLOAD
     Dosage: 100 mg daily
     Route: 048
     Dates: start: 20081028, end: 20081110
  2. DEFERASIROX [Suspect]
     Dosage: 1000 mg daily
     Route: 048
     Dates: start: 20081118, end: 20081121
  3. DEFERASIROX [Suspect]
     Dosage: 1000 mg daily
     Route: 048
     Dates: start: 20090106, end: 20090114
  4. NORVASC [Concomitant]
     Dosage: 5 mg
     Route: 048
     Dates: start: 20081028
  5. LASIX [Concomitant]
     Dosage: 20 mg
     Route: 048
     Dates: start: 20081028
  6. PRIMOBOLAN [Concomitant]
     Dosage: 20 mg
     Route: 048
     Dates: start: 20081028
  7. TRANSAMIN [Concomitant]
     Dosage: 750 mg
     Route: 048
     Dates: start: 20081028
  8. CIPROXAN [Concomitant]
     Dosage: 400 mg
     Route: 048
     Dates: start: 20081028, end: 20081113
  9. ITRIZOLE [Concomitant]
     Dosage: 20 ml
     Route: 048
     Dates: start: 20081028, end: 20081113
  10. MYCOSYST [Concomitant]
     Dosage: 100 mg
     Route: 048
     Dates: start: 20081113, end: 20081215
  11. FLOMOX [Concomitant]
     Dosage: 300 mg
     Route: 048
     Dates: start: 20081113, end: 20081215
  12. CRAVIT [Concomitant]
     Dosage: 300 mg
     Route: 048
     Dates: start: 20081226

REACTIONS (5)
  - Sudden death [Fatal]
  - Rash [Recovering/Resolving]
  - Pruritus [Recovered/Resolved]
  - Sensory disturbance [Recovered/Resolved]
  - Paraesthesia [Recovered/Resolved]
